FAERS Safety Report 18598485 (Version 2)
Quarter: 2020Q4

REPORT INFORMATION
  Report Type: Spontaneous
  Country: IL (occurrence: IL)
  Receive Date: 20201210
  Receipt Date: 20201224
  Transmission Date: 20210114
  Serious: Yes (Other)
  Sender: FDA-Public Use
  Company Number: IL-IPSEN BIOPHARMACEUTICALS, INC.-2020-24251

PATIENT
  Sex: Female
  Weight: 60 kg

DRUGS (11)
  1. DYSPORT [Suspect]
     Active Substance: ABOBOTULINUMTOXINA
     Indication: SKIN WRINKLING
  2. HYALASE [Suspect]
     Active Substance: HYALURONIDASE
     Indication: SKIN WRINKLING
     Dosage: 150 IU
     Route: 065
     Dates: start: 20201117
  3. HYALASE [Suspect]
     Active Substance: HYALURONIDASE
     Indication: SKIN WRINKLING
  4. DYSPORT [Suspect]
     Active Substance: ABOBOTULINUMTOXINA
     Indication: SKIN WRINKLING
     Dosage: 117 IU (PROCERUS-10 UNITS, CORRUGATOR SUPERCILII MEDIAL-10 UNITS A SIDE, CORRUGATOR SUPERCILII LATER
     Route: 030
     Dates: start: 20201110, end: 20201110
  5. HYALASE [Suspect]
     Active Substance: HYALURONIDASE
     Indication: SKIN WRINKLING
  6. DYSPORT [Suspect]
     Active Substance: ABOBOTULINUMTOXINA
     Indication: SKIN WRINKLING
  7. HYALASE [Suspect]
     Active Substance: HYALURONIDASE
     Indication: SKIN WRINKLING
  8. HYALASE [Suspect]
     Active Substance: HYALURONIDASE
     Indication: SKIN WRINKLING
  9. DYSPORT [Suspect]
     Active Substance: ABOBOTULINUMTOXINA
     Indication: SKIN WRINKLING
  10. DYSPORT [Suspect]
     Active Substance: ABOBOTULINUMTOXINA
     Indication: SKIN WRINKLING
  11. DYSPORT [Suspect]
     Active Substance: ABOBOTULINUMTOXINA
     Indication: OFF LABEL USE

REACTIONS (10)
  - Unevaluable event [Recovered/Resolved]
  - Injection site pain [Recovered/Resolved]
  - Migraine [Recovered/Resolved]
  - Swelling face [Recovered/Resolved]
  - Movement disorder [Recovered/Resolved]
  - Off label use [Unknown]
  - Injection site nodule [Recovered/Resolved]
  - Off label use [Unknown]
  - Facial paresis [Recovered/Resolved]
  - Facial asymmetry [Recovered/Resolved]

NARRATIVE: CASE EVENT DATE: 202011
